FAERS Safety Report 7606441-3 (Version None)
Quarter: 2011Q3

REPORT INFORMATION
  Report Type: 
  Country: None (occurrence: None)
  Receive Date: 20110713
  Receipt Date: 20110705
  Transmission Date: 20111222
  Serious: Yes (Other)
  Sender: FDA-Public Use
  Company Number: BR-ABBOTT-11P-020-0837857-00

PATIENT
  Sex: Female
  Weight: 51 kg

DRUGS (4)
  1. PREDNISONE [Concomitant]
     Indication: CROHN'S DISEASE
     Route: 048
  2. HUMIRA [Suspect]
     Dosage: MAINTENANCE DOSE
     Route: 058
     Dates: end: 20100101
  3. HUMIRA [Suspect]
     Indication: CROHN'S DISEASE
     Dosage: INDUCTION DOSE
     Route: 058
  4. HUMIRA [Suspect]
     Dosage: 14 DAYS LATER
     Route: 058

REACTIONS (1)
  - ARRESTED LABOUR [None]
